FAERS Safety Report 7488244-6 (Version None)
Quarter: 2011Q2

REPORT INFORMATION
  Report Type: 
  Country: None (occurrence: None)
  Receive Date: 20110511
  Receipt Date: 20100217
  Transmission Date: 20111010
  Serious: Yes (Other)
  Sender: FDA-Public Use
  Company Number: 1000000353

PATIENT
  Sex: Female

DRUGS (4)
  1. ESCITALOPRAM [Suspect]
     Indication: DEPRESSION
     Dosage: ORAL; 20 MG (20 MG, 1 IN 1 D), ORAL
     Route: 048
     Dates: start: 20060615
  2. ESCITALOPRAM [Suspect]
     Indication: OBSESSIVE-COMPULSIVE DISORDER
     Dosage: ORAL; 20 MG (20 MG, 1 IN 1 D), ORAL
     Route: 048
     Dates: start: 20060615
  3. TOPAMAX (TOPIRAMATE) (TOPIRAMATE) [Concomitant]
  4. LITHIUM CARBONATE [Concomitant]

REACTIONS (25)
  - HYPERSOMNIA [None]
  - NEUTROPHIL COUNT INCREASED [None]
  - RENAL IMPAIRMENT [None]
  - FEELING COLD [None]
  - WEIGHT INCREASED [None]
  - FOOD CRAVING [None]
  - CONDITION AGGRAVATED [None]
  - WHITE BLOOD CELL COUNT INCREASED [None]
  - INSOMNIA [None]
  - FATIGUE [None]
  - VOMITING [None]
  - ECZEMA [None]
  - SUICIDAL IDEATION [None]
  - DEPRESSION [None]
  - FEELING ABNORMAL [None]
  - APATHY [None]
  - EYELID OEDEMA [None]
  - CRYING [None]
  - TEAR DISCOLOURATION [None]
  - ANXIETY [None]
  - ALOPECIA [None]
  - MOOD SWINGS [None]
  - HYPERPHAGIA [None]
  - DISEASE RECURRENCE [None]
  - BLOOD ELECTROLYTES DECREASED [None]
